FAERS Safety Report 8619482 (Version 2)
Quarter: 2013Q1

REPORT INFORMATION
  Report Type: Spontaneous
  Country: US (occurrence: None)
  Receive Date: 20120604
  Receipt Date: 20121219
  Transmission Date: 20140127
  Serious: Yes (Life-Threatening, Hospitalization)
  Sender: FDA-Public Use
  Company Number: P0576

PATIENT
  Age: 65 Year
  Sex: Male

DRUGS (8)
  1. PROVENGE [Suspect]
     Indication: PROSTATE CANCER METASTATIC
     Dosage: INTRAVENOUS
     Route: 042
     Dates: start: 20120413, end: 20120413
  2. ABIRATERONE/PREDNISONE (PREDNISONE, ABIRATERONE ACETATE) [Concomitant]
  3. VICODIN (PARACETAMOL, HYDROCODONE BITARTRATE) [Concomitant]
  4. AMBIEN [Concomitant]
  5. KENALOG [Concomitant]
  6. SULFAMETHOXAZOLE AND TRIMETHOPRIM [Concomitant]
  7. METAMUCIL (PLANTAGO OVATA) [Concomitant]
  8. PRILOSEC [Concomitant]

REACTIONS (9)
  - Pulmonary embolism [None]
  - Thrombosis in device [None]
  - Pericardial effusion [None]
  - Atelectasis [None]
  - Pulmonary haemorrhage [None]
  - Pulmonary oedema [None]
  - Pulmonary mass [None]
  - Pleural effusion [None]
  - Pneumonia [None]
